FAERS Safety Report 15618901 (Version 3)
Quarter: 2019Q1

REPORT INFORMATION
  Report Type: Report from Study
  Country: US (occurrence: US)
  Receive Date: 20181114
  Receipt Date: 20190215
  Transmission Date: 20190417
  Serious: Yes (Other)
  Sender: FDA-Public Use
  Company Number: PHEH2018US047664

PATIENT
  Sex: Male

DRUGS (1)
  1. GILENYA [Suspect]
     Active Substance: FINGOLIMOD HYDROCHLORIDE
     Indication: RELAPSING MULTIPLE SCLEROSIS
     Dosage: 0.5 MG, QD
     Route: 048
     Dates: start: 20181103

REACTIONS (5)
  - Visual impairment [Recovering/Resolving]
  - Pancreatic disorder [Unknown]
  - Stress [Recovering/Resolving]
  - Uhthoff^s phenomenon [Recovering/Resolving]
  - Swelling [Recovering/Resolving]
